FAERS Safety Report 4932055-X (Version None)
Quarter: 2006Q1

REPORT INFORMATION
  Report Type: 
  Country: None (occurrence: None)
  Receive Date: 20060228
  Receipt Date: 20031015
  Transmission Date: 20060701
  Serious: Yes (Hospitalization, Other)
  Sender: FDA-Public Use
  Company Number: KII-2003-0006602

PATIENT
  Age: 29 Year
  Sex: Male

DRUGS (3)
  1. OXYCONTIN [Suspect]
  2. ALCOHOL (ETHANOL) [Suspect]
  3. NORTRIPTYLINE HCL [Suspect]

REACTIONS (13)
  - ALCOHOL USE [None]
  - CONFUSIONAL STATE [None]
  - DISORIENTATION [None]
  - DRY MOUTH [None]
  - DYSPNOEA [None]
  - HEART RATE INCREASED [None]
  - HYPOAESTHESIA [None]
  - INTENTIONAL DRUG MISUSE [None]
  - MULTIPLE DRUG OVERDOSE INTENTIONAL [None]
  - SELF-INJURIOUS IDEATION [None]
  - SWELLING FACE [None]
  - TACHYCARDIA [None]
  - TREMOR [None]
